FAERS Safety Report 23952313 (Version 1)
Quarter: 2024Q2

REPORT INFORMATION
  Report Type: Spontaneous
  Country: US (occurrence: None)
  Receive Date: 20240607
  Receipt Date: 20240607
  Transmission Date: 20240716
  Serious: Yes (Life-Threatening, Other)
  Sender: FDA-Public Use
  Company Number: 2024A130669

PATIENT
  Sex: Female

DRUGS (1)
  1. FARXIGA [Suspect]
     Active Substance: DAPAGLIFLOZIN PROPANEDIOL
     Indication: Renal failure
     Route: 048

REACTIONS (7)
  - Renal failure [Unknown]
  - Renal pain [Unknown]
  - Urine output decreased [Unknown]
  - Fluid retention [Unknown]
  - Infection [Unknown]
  - Urinary tract infection [Unknown]
  - Haemorrhage [Unknown]
